FAERS Safety Report 9571035 (Version 1)
Quarter: 2013Q1

REPORT INFORMATION
  Report Type: Spontaneous
  Country: US (occurrence: None)
  Receive Date: 20120816
  Receipt Date: 20120816
  Transmission Date: 20140127
  Serious: Yes (Disabling)
  Sender: FDA-Public Use
  Company Number: SP04266

PATIENT
  Age: 66 Year
  Sex: Female
  Weight: 86.18 kg

DRUGS (14)
  1. MOVIPREP (SOLUTION) [Suspect]
     Indication: BOWEL PREPARATION
     Route: 048
     Dates: start: 20110804, end: 20110804
  2. TIZANIDINE [Concomitant]
  3. BUPROPION [Concomitant]
  4. ASPIRIN [Concomitant]
  5. CITALOPRAM [Concomitant]
  6. CLARITIN [Concomitant]
  7. CLONAZEPAM [Concomitant]
  8. FLUTICASONE  (50 MICROGRAM) [Concomitant]
  9. LOSARTAN/HCTZ 100/25 [Concomitant]
  10. MELOXICAM [Concomitant]
  11. METOPROLOL [Concomitant]
  12. PRAVASTATIN [Concomitant]
  13. PRILOSEC [Concomitant]
  14. FOLIC AID (1 MILLIGRAM) [Concomitant]

REACTIONS (2)
  - Nausea [None]
  - Vomiting [None]
